FAERS Safety Report 16939191 (Version 3)
Quarter: 2019Q4

REPORT INFORMATION
  Report Type: Spontaneous
  Country: US (occurrence: US)
  Receive Date: 20191021
  Receipt Date: 20191212
  Transmission Date: 20200122
  Serious: Yes (Hospitalization, Other)
  Sender: FDA-Public Use
  Company Number: US-AMGEN-USASP2019172155

PATIENT
  Age: 59 Year
  Sex: Male

DRUGS (25)
  1. IRINOTECAN [Concomitant]
     Active Substance: IRINOTECAN
     Dosage: 400 MILLIGRAM/SQ. METER, (OVER 2 HOURS EVERY 14 DAYS), 70 MG/M2 EVERY 2 WEEKS (LIPOSOMAL)
     Route: 042
     Dates: start: 20190828
  2. ATROPINE. [Concomitant]
     Active Substance: ATROPINE
     Dosage: 0.4 MILLIGRAM PER MILLILITRE, Q2WK
     Route: 042
  3. DEXAMETHASONE. [Concomitant]
     Active Substance: DEXAMETHASONE
     Dosage: 8 MILLIGRAM
     Route: 042
  4. ABRAXANE [Concomitant]
     Active Substance: PACLITAXEL
     Dosage: UNK
     Dates: start: 20170815
  5. FLUOROURACIL. [Concomitant]
     Active Substance: FLUOROURACIL
     Dosage: 2400 MILLIGRAM/SQ. METER, OVER 48 HOURS EVERY 14 DAYS
     Route: 042
  6. LEUCOVORIN [CALCIUM FOLINATE] [Concomitant]
     Active Substance: LEUCOVORIN
     Dosage: 400 MILLIGRAM/SQ. METER, (OVER 2 HOURS EVERY 14 DAYS)
  7. DILANTIN D.A. [Concomitant]
     Active Substance: PHENYTOIN SODIUM
  8. OXYCONTIN [Concomitant]
     Active Substance: OXYCODONE HYDROCHLORIDE
  9. NYSTATIN. [Concomitant]
     Active Substance: NYSTATIN
  10. ZOFRAN MELT [Concomitant]
  11. GEMCITABINE. [Concomitant]
     Active Substance: GEMCITABINE
     Dosage: UNK
     Dates: start: 20170815
  12. XELODA [Concomitant]
     Active Substance: CAPECITABINE
     Dosage: UNK
     Dates: start: 20180405
  13. ZYRTEC [Concomitant]
     Active Substance: CETIRIZINE HYDROCHLORIDE
  14. PROMETHAZINE [Concomitant]
     Active Substance: PROMETHAZINE HYDROCHLORIDE
  15. NEULASTA [Suspect]
     Active Substance: PEGFILGRASTIM
     Indication: PRODUCT USED FOR UNKNOWN INDICATION
     Dosage: 6 MILLIGRAM, Q2WK
     Route: 058
     Dates: start: 20180510
  16. BENADRYL A [Concomitant]
     Active Substance: DIPHENHYDRAMINE HYDROCHLORIDE
  17. CLEOCIN T [Concomitant]
     Active Substance: CLINDAMYCIN PHOSPHATE
  18. ATIVAN [Concomitant]
     Active Substance: LORAZEPAM
  19. ALOXI [Concomitant]
     Active Substance: PALONOSETRON HYDROCHLORIDE
     Dosage: 0.25 MILLIGRAM
     Route: 042
  20. PERCOCET [OXYCODONE HYDROCHLORIDE;OXYCODONE TEREPHTHALATE;PARACETAMOL] [Concomitant]
     Active Substance: ACETAMINOPHEN\OXYCODONE HYDROCHLORIDE\OXYCODONE TEREPHTHALATE
  21. SILVADENE [Concomitant]
     Active Substance: SILVER SULFADIAZINE
  22. ACYCLOVIR [ACICLOVIR] [Concomitant]
     Active Substance: ACYCLOVIR
  23. FOLFIRINOX [Concomitant]
     Active Substance: FLUOROURACIL\IRINOTECAN\LEUCOVORIN\OXALIPLATIN
  24. 5 FU [Concomitant]
     Active Substance: FLUOROURACIL
     Dosage: UNK
     Dates: start: 20190828
  25. LOTRISONE [Concomitant]
     Active Substance: BETAMETHASONE DIPROPIONATE\CLOTRIMAZOLE

REACTIONS (17)
  - Weight decreased [Not Recovered/Not Resolved]
  - Asthenia [Not Recovered/Not Resolved]
  - Thrombocytopenia [Unknown]
  - Pancreatic carcinoma metastatic [Not Recovered/Not Resolved]
  - Pain in extremity [Recovering/Resolving]
  - Gastrointestinal wall thickening [Unknown]
  - Device use error [Unknown]
  - Post procedural complication [Unknown]
  - Leukopenia [Unknown]
  - Lung consolidation [Not Recovered/Not Resolved]
  - Decreased appetite [Not Recovered/Not Resolved]
  - Pleural effusion [Unknown]
  - Peripheral swelling [Recovering/Resolving]
  - Incorrect disposal of product [Unknown]
  - Fatigue [Unknown]
  - Oropharyngeal pain [Not Recovered/Not Resolved]
  - Erythema [Recovering/Resolving]

NARRATIVE: CASE EVENT DATE: 2018
